FAERS Safety Report 8588961 (Version 3)
Quarter: 2012Q4

REPORT INFORMATION
  Report Type: Spontaneous
  Country: US (occurrence: None)
  Receive Date: 20120518
  Receipt Date: 20120817
  Transmission Date: 20130627
  Serious: Yes (Other)
  Sender: FDA-Public Use
  Company Number: DSA_56425_2012

PATIENT
  Age: 41 Year
  Sex: Female

DRUGS (39)
  1. ELIDEL [Suspect]
     Indication: ECZEMA
     Dosage: 20 MG QD
     Dates: start: 200411
  2. TAMOXIFEN CITRATE [Concomitant]
  3. CALCIUM [Concomitant]
  4. VITAMIN D [Concomitant]
  5. TYLENOL REGULAR [Concomitant]
  6. MOTRIN [Concomitant]
  7. PACLITAXEL [Concomitant]
  8. NEULASTA [Concomitant]
  9. ATIVAN [Concomitant]
  10. ZOFRAN [Concomitant]
  11. ONDANSETRON [Concomitant]
  12. CEFADROXIL [Concomitant]
  13. CEPHALEXIN [Concomitant]
  14. HYDROCODONE [Concomitant]
  15. SULFAMETHOXAZOLE [Concomitant]
  16. OXYCODONE HYDROCHLORIDE [Concomitant]
  17. PROCHLORPERAZINE [Concomitant]
  18. CIPRO [Concomitant]
  19. ZITHROMAX [Concomitant]
  20. LOPROX [Concomitant]
  21. MENTAX [Concomitant]
  22. LUXIQ [Concomitant]
  23. CORTISPORIN [Concomitant]
  24. PERIDEX [Concomitant]
  25. KEFLEX [Concomitant]
  26. BACTRIM DS [Concomitant]
  27. PERCOCET [Concomitant]
  28. COLACE [Concomitant]
  29. CLINDAMYCIN [Concomitant]
  30. NAPROXEN [Concomitant]
  31. FLEXERIL [Concomitant]
  32. ALLEGRA D-12 HOUR [Concomitant]
  33. DIFLUCAN [Concomitant]
  34. AKNE-MYCIN [Concomitant]
  35. CUTIVATE [Concomitant]
  36. NEO-POLYCIN [Concomitant]
  37. LIDOCAINE [Concomitant]
  38. CYCLOBENZAPRINE [Concomitant]
  39. DIAZEPAM [Concomitant]

REACTIONS (34)
  - INJURY [None]
  - ANAEMIA [None]
  - LEUKOCYTOSIS [None]
  - DYSGEUSIA [None]
  - ALOPECIA [None]
  - ARTHRALGIA [None]
  - MYALGIA [None]
  - PRURITUS [None]
  - Oestrogen receptor assay positive [None]
  - Progesterone receptor assay positive [None]
  - Scar [None]
  - URINARY TRACT INFECTION [None]
  - OTITIS EXTERNA [None]
  - ORAL DISORDER [None]
  - FATIGUE [None]
  - ORAL PAIN [None]
  - BREAST CANCER STAGE III [None]
  - LYMPHOEDEMA [None]
  - JOINT STIFFNESS [None]
  - MUSCLE DISORDER [None]
  - LIGAMENT DISORDER [None]
  - SKIN EXFOLIATION [None]
  - MAMMARY DUCT ECTASIA [None]
  - BREAST FIBROSIS [None]
  - BREAST INFLAMMATION [None]
  - DERMOID CYST [None]
  - URINE LEUKOCYTE ESTERASE POSITIVE [None]
  - METASTASES TO LYMPH NODES [None]
  - Dry eye [None]
  - DYSFUNCTIONAL UTERINE BLEEDING [None]
  - Periodontitis [None]
  - DENTAL CARIES [None]
  - Gingivitis [None]
  - GINGIVAL BLEEDING [None]
